FAERS Safety Report 14796192 (Version 2)
Quarter: 2018Q3

REPORT INFORMATION
  Report Type: Report from Study
  Country: US (occurrence: US)
  Receive Date: 20180423
  Receipt Date: 20180719
  Transmission Date: 20181010
  Serious: No
  Sender: FDA-Public Use
  Company Number: US-AMGEN-USASL2018004944

PATIENT
  Sex: Male
  Weight: 131.5 kg

DRUGS (1)
  1. REPATHA [Suspect]
     Active Substance: EVOLOCUMAB
     Indication: HYPERCHOLESTEROLAEMIA
     Dosage: 140 MG/ML (INJECT ONE PEN), Q2WK
     Route: 058
     Dates: start: 20171205

REACTIONS (1)
  - Injection site bruising [Unknown]
